FAERS Safety Report 9835931 (Version 1)
Quarter: 2014Q1

REPORT INFORMATION
  Report Type: Spontaneous
  Country: US (occurrence: US)
  Receive Date: 20140122
  Receipt Date: 20140122
  Transmission Date: 20141002
  Serious: Yes (Other)
  Sender: FDA-Public Use
  Company Number: US-UCBSA-108219

PATIENT
  Age: 27 Year
  Sex: Female

DRUGS (3)
  1. CIMZIA [Suspect]
     Indication: CROHN^S DISEASE
     Dates: start: 20131001
  2. PREDNISONE [Concomitant]
  3. PREDNISONE [Concomitant]
     Dosage: DOSE TAPERING

REACTIONS (1)
  - Oral candidiasis [Not Recovered/Not Resolved]
